FAERS Safety Report 8190672-0 (Version None)
Quarter: 2012Q1

REPORT INFORMATION
  Report Type: 
  Country: None (occurrence: None)
  Receive Date: 20120307
  Receipt Date: 20101118
  Transmission Date: 20120608
  Serious: No
  Sender: FDA-Public Use
  Company Number: US-B.I. PHARMACEUTICALS,INC./RIDGEFIELD-2010-BP-12995BP

PATIENT
  Age: 55 Year
  Sex: Male

DRUGS (2)
  1. AVODART [Concomitant]
     Indication: BENIGN PROSTATIC HYPERPLASIA
  2. FLOMAX [Suspect]
     Indication: BENIGN PROSTATIC HYPERPLASIA
     Dosage: 0.8 MG
     Dates: start: 20100404

REACTIONS (1)
  - POLLAKIURIA [None]
